FAERS Safety Report 7320151-1 (Version None)
Quarter: 2011Q1

REPORT INFORMATION
  Report Type: 
  Country: None (occurrence: None)
  Receive Date: 20110228
  Receipt Date: 20110217
  Transmission Date: 20110831
  Serious: Yes (Hospitalization, Other)
  Sender: FDA-Public Use
  Company Number: US-ASTRAZENECA-2009UW06128

PATIENT
  Age: 48 Year
  Sex: Female
  Weight: 78.5 kg

DRUGS (16)
  1. SEROQUEL XR [Suspect]
     Route: 048
     Dates: start: 20080101
  2. DILANTIN [Concomitant]
     Indication: CONVULSION
  3. ALPRAZOLAM [Concomitant]
  4. CLONAZEPAM [Concomitant]
  5. PLAVIX [Concomitant]
  6. PERCOCET [Concomitant]
  7. VERAPAMIL [Concomitant]
  8. SEROQUEL XR [Suspect]
     Indication: BIPOLAR DISORDER
     Route: 048
     Dates: start: 20060601
  9. LISINOPRIL [Concomitant]
     Indication: HYPERTENSION
  10. NITROGLYCERIN [Concomitant]
     Dosage: PRN
  11. LAMICTAL [Concomitant]
  12. ASPIRIN [Concomitant]
  13. CARISOPRODOL [Concomitant]
  14. ACIPHEX [Concomitant]
  15. CRESTOR [Suspect]
     Indication: DYSLIPIDAEMIA
     Route: 048
     Dates: start: 20060101
  16. TRICOR [Concomitant]

REACTIONS (4)
  - CEREBROVASCULAR ACCIDENT [None]
  - PULMONARY THROMBOSIS [None]
  - AMNESIA [None]
  - CONVULSION [None]
